FAERS Safety Report 4831607-5 (Version None)
Quarter: 2005Q4

REPORT INFORMATION
  Report Type: 
  Country: None (occurrence: None)
  Receive Date: 20051116
  Receipt Date: 20051104
  Transmission Date: 20060501
  Serious: Yes (Hospitalization, Other)
  Sender: FDA-Public Use
  Company Number: 2005151639

PATIENT
  Sex: Female
  Weight: 56.6996 kg

DRUGS (8)
  1. LIPITOR [Suspect]
     Indication: BLOOD CHOLESTEROL
     Dosage: 10 MG (10 MG 1 IN 1D)
     Dates: start: 19970401
  2. MEGACE [Concomitant]
  3. LORATADINE [Concomitant]
  4. LORAZEPAM [Concomitant]
  5. ASPIRIN [Concomitant]
  6. VITAMINS (VITAMINS) [Concomitant]
  7. SPIRIVA [Concomitant]
  8. ADVAIR DISKUS 100/50 [Concomitant]

REACTIONS (10)
  - BREAST CANCER FEMALE [None]
  - CHRONIC OBSTRUCTIVE PULMONARY DISEASE [None]
  - FATIGUE [None]
  - IMMOBILE [None]
  - JOINT STIFFNESS [None]
  - LOWER RESPIRATORY TRACT INFECTION [None]
  - LUNG CARCINOMA CELL TYPE UNSPECIFIED STAGE III [None]
  - PNEUMONIA [None]
  - SEPSIS [None]
  - UPPER RESPIRATORY TRACT INFECTION [None]
